FAERS Safety Report 21085224 (Version 2)
Quarter: 2022Q3

REPORT INFORMATION
  Report Type: Spontaneous
  Country: PK (occurrence: PK)
  Receive Date: 20220714
  Receipt Date: 20220819
  Transmission Date: 20221027
  Serious: Yes (Other)
  Sender: FDA-Public Use
  Company Number: PK-TAKEDA-2022TUS036103

PATIENT
  Sex: Male

DRUGS (2)
  1. ADCETRIS [Suspect]
     Active Substance: BRENTUXIMAB VEDOTIN
     Indication: Hodgkin^s disease recurrent
     Dosage: 1000 MILLIGRAM, 3/WEEK
     Route: 042
     Dates: start: 20210616, end: 20211120
  2. BENDAMUSTINE [Suspect]
     Active Substance: BENDAMUSTINE
     Indication: Hodgkin^s disease recurrent
     Dosage: UNK UNK, 3/WEEK
     Route: 042
     Dates: start: 20210616, end: 20211120

REACTIONS (2)
  - Hodgkin^s disease recurrent [Unknown]
  - Off label use [Unknown]
